FAERS Safety Report 10236448 (Version 2)
Quarter: 2014Q3

REPORT INFORMATION
  Report Type: Report from Study
  Country: US (occurrence: US)
  Receive Date: 20140613
  Receipt Date: 20140714
  Transmission Date: 20150326
  Serious: Yes (Hospitalization, Other)
  Sender: FDA-Public Use
  Company Number: US-BRISTOL-MYERS SQUIBB COMPANY-20960910

PATIENT
  Age: 68 Year
  Sex: Male
  Weight: 90.7 kg

DRUGS (5)
  1. LISINOPRIL. [Concomitant]
     Active Substance: LISINOPRIL
     Dosage: TABLET
     Route: 048
  2. IPILIMUMAB [Suspect]
     Active Substance: IPILIMUMAB
     Indication: PROSTATE CANCER
     Dosage: 2ND DOSE ON: 12MAY2014
     Route: 042
  3. CALCIUM CARBONATE + COLECALCIFEROL [Concomitant]
     Route: 048
  4. HYDROCODONE, ACETAMINOPHEN [Concomitant]
     Active Substance: ACETAMINOPHEN\HYDROCODONE BITARTRATE
     Dosage: EVERY 4 HOUR AS NEEDED?5-500MG,NOT TO EXCEED 6 TABS PER 24 HR.
     Route: 048
  5. TAMSULOSIN [Concomitant]
     Active Substance: TAMSULOSIN
     Dosage: CAPSULE
     Route: 048

REACTIONS (4)
  - Colitis [Unknown]
  - Pyrexia [Recovering/Resolving]
  - Rash [Recovered/Resolved]
  - Autoimmune hepatitis [Recovering/Resolving]

NARRATIVE: CASE EVENT DATE: 20140531
